FAERS Safety Report 4366136-9 (Version None)
Quarter: 2004Q2

REPORT INFORMATION
  Report Type: 
  Country: None (occurrence: None)
  Receive Date: 20040524
  Receipt Date: 20040506
  Transmission Date: 20050107
  Serious: Yes (Hospitalization)
  Sender: FDA-Public Use
  Company Number: 2004GB01150

PATIENT
  Age: 62 Year
  Sex: Male

DRUGS (3)
  1. GEFITINIB [Suspect]
     Indication: CARCINOMA
     Dates: start: 20040412, end: 20040428
  2. FENTANYL [Concomitant]
  3. ORAMORPH SR [Concomitant]

REACTIONS (2)
  - DIARRHOEA [None]
  - RECTAL HAEMORRHAGE [None]
